FAERS Safety Report 21054323 (Version 1)
Quarter: 2022Q3

REPORT INFORMATION
  Report Type: Spontaneous
  Country: AU (occurrence: AU)
  Receive Date: 20220707
  Receipt Date: 20220707
  Transmission Date: 20221026
  Serious: Yes (Hospitalization)
  Sender: FDA-Public Use
  Company Number: AU-BIOMARINAP-AU-2022-144165

PATIENT

DRUGS (3)
  1. BRINEURA [Suspect]
     Active Substance: CERLIPONASE ALFA
     Indication: Neuronal ceroid lipofuscinosis
     Dosage: 300 MILLIGRAM, QOW
     Route: 020
     Dates: start: 20180118
  2. MELATONIN [Concomitant]
     Active Substance: MELATONIN
     Indication: Sleep disorder
     Dosage: 3 MILLIGRAM, QD
     Route: 048
  3. EPILIM [Concomitant]
     Active Substance: VALPROATE SODIUM
     Indication: Seizure
     Dosage: 300 MILLIGRAM, BID
     Route: 048

REACTIONS (1)
  - Medical device site haemorrhage [Recovered/Resolved]

NARRATIVE: CASE EVENT DATE: 20220629
